FAERS Safety Report 16449093 (Version 6)
Quarter: 2019Q4

REPORT INFORMATION
  Report Type: Report from Study
  Country: CN (occurrence: CN)
  Receive Date: 20190619
  Receipt Date: 20191206
  Transmission Date: 20200122
  Serious: Yes (Hospitalization)
  Sender: FDA-Public Use
  Company Number: CN-ROCHE-2259397

PATIENT
  Age: 57 Year
  Sex: Female
  Weight: 51.5 kg

DRUGS (135)
  1. TRAMADOL HYDROCHLORIDE. [Concomitant]
     Active Substance: TRAMADOL HYDROCHLORIDE
     Route: 048
     Dates: start: 20190110, end: 20190116
  2. POTASSIUM CHLORIDE. [Concomitant]
     Active Substance: POTASSIUM CHLORIDE
     Dosage: SOLUTION
     Route: 048
     Dates: start: 20190415, end: 20190415
  3. OXYCONTIN [Concomitant]
     Active Substance: OXYCODONE HYDROCHLORIDE
     Route: 048
     Dates: start: 20190105, end: 20190116
  4. AMBROXOL [Concomitant]
     Active Substance: AMBROXOL
     Route: 042
     Dates: start: 20190130, end: 20190225
  5. POTASSIUM CITRATE. [Concomitant]
     Active Substance: POTASSIUM CITRATE
     Route: 048
     Dates: start: 20190215, end: 20190215
  6. POTASSIUM CITRATE. [Concomitant]
     Active Substance: POTASSIUM CITRATE
     Route: 048
     Dates: start: 20190607, end: 20190613
  7. DUPHALAC [Concomitant]
     Active Substance: LACTULOSE
     Route: 048
     Dates: start: 20190114, end: 20190116
  8. OXYCODONE [Concomitant]
     Active Substance: OXYCODONE
     Route: 048
     Dates: start: 20190105, end: 20190105
  9. OXYCODONE [Concomitant]
     Active Substance: OXYCODONE
     Route: 048
     Dates: start: 20190107, end: 20190114
  10. INDOMETHACIN [INDOMETACIN] [Concomitant]
     Active Substance: INDOMETHACIN
     Route: 054
     Dates: start: 20190209, end: 20190209
  11. INDOMETHACIN [INDOMETACIN] [Concomitant]
     Active Substance: INDOMETHACIN
     Route: 054
     Dates: start: 20190109, end: 20190109
  12. INDOMETHACIN [INDOMETACIN] [Concomitant]
     Active Substance: INDOMETHACIN
     Route: 065
     Dates: start: 20190512, end: 20190512
  13. INDOMETHACIN [INDOMETACIN] [Concomitant]
     Active Substance: INDOMETHACIN
     Route: 048
     Dates: start: 20190327, end: 20190327
  14. LOPERAMIDE [Concomitant]
     Active Substance: LOPERAMIDE
     Route: 048
     Dates: start: 20190212, end: 20190212
  15. ONDANSETRON HYDROCHLORIDE. [Concomitant]
     Active Substance: ONDANSETRON HYDROCHLORIDE
     Indication: PROPHYLAXIS
     Dosage: PILL
     Route: 048
     Dates: start: 20190415, end: 20190421
  16. METOPROLOL TARTRATE. [Concomitant]
     Active Substance: METOPROLOL TARTRATE
     Route: 048
     Dates: start: 20190416, end: 20190421
  17. ALBUMIN PREPARED FROM HUMAN PLASMA [Concomitant]
     Route: 042
     Dates: start: 20190518, end: 20190522
  18. POTASSIUM CHLORIDE. [Concomitant]
     Active Substance: POTASSIUM CHLORIDE
     Dosage: PILL
     Route: 048
     Dates: start: 20190420, end: 20190421
  19. POTASSIUM CHLORIDE. [Concomitant]
     Active Substance: POTASSIUM CHLORIDE
     Route: 042
     Dates: start: 20190613, end: 20190623
  20. DUPHALAC [Concomitant]
     Active Substance: LACTULOSE
     Route: 048
     Dates: start: 20190114, end: 20190114
  21. OXYCODONE [Concomitant]
     Active Substance: OXYCODONE
     Route: 048
     Dates: start: 20190129, end: 20190129
  22. OXYCODONE [Concomitant]
     Active Substance: OXYCODONE
     Route: 048
     Dates: start: 20190202, end: 20190202
  23. INDOMETHACIN [INDOMETACIN] [Concomitant]
     Active Substance: INDOMETHACIN
     Route: 054
     Dates: start: 20190111, end: 20190111
  24. INDOMETHACIN [INDOMETACIN] [Concomitant]
     Active Substance: INDOMETHACIN
     Route: 065
     Dates: start: 20190514, end: 20190514
  25. DEXAMETHASONE. [Concomitant]
     Active Substance: DEXAMETHASONE
     Indication: PROPHYLAXIS
     Route: 042
     Dates: start: 20190202, end: 20190202
  26. DEXAMETHASONE. [Concomitant]
     Active Substance: DEXAMETHASONE
     Dosage: SOLUTION
     Route: 042
     Dates: start: 20190216, end: 20190225
  27. DEXAMETHASONE. [Concomitant]
     Active Substance: DEXAMETHASONE
     Dosage: SOLUTION
     Route: 042
     Dates: start: 20190213, end: 20190213
  28. PANTOPRAZOLE [Concomitant]
     Active Substance: PANTOPRAZOLE
     Indication: PROPHYLAXIS
     Route: 042
     Dates: start: 20190205, end: 20190225
  29. ALBUMIN [Concomitant]
     Active Substance: ALBUMIN HUMAN
     Dosage: PREPARED FROM HUMAN PLASMA?LIQUID
     Route: 050
     Dates: start: 20190416, end: 20190418
  30. OXYCODONE HYDROCHLORIDE. [Concomitant]
     Active Substance: OXYCODONE HYDROCHLORIDE
     Route: 048
     Dates: start: 20190105
  31. METOPROLOL TARTRATE. [Concomitant]
     Active Substance: METOPROLOL TARTRATE
     Route: 048
     Dates: start: 20190522
  32. COMBIVENT [Concomitant]
     Active Substance: ALBUTEROL SULFATE\IPRATROPIUM BROMIDE
     Route: 065
     Dates: start: 20190606, end: 20190606
  33. TRAMADOL HYDROCHLORIDE. [Concomitant]
     Active Substance: TRAMADOL HYDROCHLORIDE
     Route: 048
     Dates: start: 20190514, end: 20190517
  34. POTASSIUM CHLORIDE. [Concomitant]
     Active Substance: POTASSIUM CHLORIDE
     Route: 042
     Dates: start: 20190614, end: 20190614
  35. POTASSIUM CITRATE. [Concomitant]
     Active Substance: POTASSIUM CITRATE
     Route: 048
     Dates: start: 20190606, end: 20190607
  36. INDOMETHACIN [INDOMETACIN] [Concomitant]
     Active Substance: INDOMETHACIN
     Indication: PROPHYLAXIS
     Route: 054
     Dates: start: 20190106, end: 20190107
  37. INDOMETHACIN [INDOMETACIN] [Concomitant]
     Active Substance: INDOMETHACIN
     Route: 054
     Dates: start: 20190203, end: 20190203
  38. INDOMETHACIN [INDOMETACIN] [Concomitant]
     Active Substance: INDOMETHACIN
     Route: 048
     Dates: start: 20190220, end: 20190220
  39. INDOMETHACIN [INDOMETACIN] [Concomitant]
     Active Substance: INDOMETHACIN
     Dosage: PILL
     Route: 054
     Dates: start: 20190417, end: 20190417
  40. CODEINE PHOSPHATE [Concomitant]
     Active Substance: CODEINE PHOSPHATE
     Indication: PROPHYLAXIS
     Dosage: 2 TABLET
     Route: 048
     Dates: start: 20190116, end: 20190116
  41. CODEINE PHOSPHATE [Concomitant]
     Active Substance: CODEINE PHOSPHATE
     Route: 048
     Dates: start: 20190130, end: 20190130
  42. CODEINE PHOSPHATE [Concomitant]
     Active Substance: CODEINE PHOSPHATE
     Route: 048
     Dates: start: 20190522
  43. MEDROXYPROGESTERONE [Concomitant]
     Active Substance: MEDROXYPROGESTERONE
     Route: 065
     Dates: start: 20190514, end: 20190522
  44. BERBERINE [Concomitant]
     Active Substance: BERBERINE
     Route: 048
     Dates: start: 20190210, end: 20190210
  45. CEFTIZOXIME SODIUM [Concomitant]
     Active Substance: CEFTIZOXIME SODIUM
     Route: 042
     Dates: start: 20190213, end: 20190220
  46. ONDANSETRON HYDROCHLORIDE. [Concomitant]
     Active Substance: ONDANSETRON HYDROCHLORIDE
     Route: 048
     Dates: start: 20190522
  47. PANTOPRAZOLE SODIUM. [Concomitant]
     Active Substance: PANTOPRAZOLE SODIUM
     Route: 042
     Dates: start: 20190605, end: 20190623
  48. LOPERAMIDE HYDROCHLORIDE. [Concomitant]
     Active Substance: LOPERAMIDE HYDROCHLORIDE
     Indication: DIARRHOEA
     Route: 048
     Dates: start: 20190322, end: 20190326
  49. METOPROLOL TARTRATE. [Concomitant]
     Active Substance: METOPROLOL TARTRATE
     Route: 048
     Dates: start: 20190614, end: 20190620
  50. METOPROLOL TARTRATE. [Concomitant]
     Active Substance: METOPROLOL TARTRATE
     Route: 048
     Dates: start: 20190421
  51. COMPOUND PLATYCODON [Concomitant]
     Route: 048
     Dates: start: 20190512, end: 20190512
  52. ALBUMIN PREPARED FROM HUMAN PLASMA [Concomitant]
     Route: 042
     Dates: start: 20190512, end: 20190515
  53. ALBUMIN PREPARED FROM HUMAN PLASMA [Concomitant]
     Route: 042
     Dates: start: 20190608, end: 20190611
  54. ALBUMIN PREPARED FROM HUMAN PLASMA [Concomitant]
     Route: 042
     Dates: start: 20190613, end: 20190615
  55. VITAMIN C [Concomitant]
     Active Substance: ASCORBIC ACID
     Route: 042
     Dates: start: 20190613, end: 20190623
  56. VITAMIN B6 [Concomitant]
     Active Substance: PYRIDOXINE HYDROCHLORIDE
     Route: 042
     Dates: start: 20190613, end: 20190623
  57. POTASSIUM CHLORIDE. [Concomitant]
     Active Substance: POTASSIUM CHLORIDE
     Indication: DECREASED APPETITE
     Route: 042
     Dates: start: 20190105, end: 20190107
  58. POTASSIUM CHLORIDE. [Concomitant]
     Active Substance: POTASSIUM CHLORIDE
     Dosage: PILL
     Route: 048
     Dates: start: 20190315, end: 20190320
  59. POTASSIUM CITRATE. [Concomitant]
     Active Substance: POTASSIUM CITRATE
     Route: 048
     Dates: start: 20190108, end: 20190116
  60. POTASSIUM CITRATE. [Concomitant]
     Active Substance: POTASSIUM CITRATE
     Route: 048
     Dates: start: 20190512, end: 20190512
  61. INDOMETHACIN [INDOMETACIN] [Concomitant]
     Active Substance: INDOMETHACIN
     Route: 054
     Dates: start: 20190212, end: 20190212
  62. CODEINE PHOSPHATE [Concomitant]
     Active Substance: CODEINE PHOSPHATE
     Route: 048
     Dates: start: 20190515, end: 20190515
  63. CODEINE PHOSPHATE [Concomitant]
     Active Substance: CODEINE PHOSPHATE
     Route: 048
     Dates: start: 20190520, end: 20190520
  64. BERBERINE [Concomitant]
     Active Substance: BERBERINE
     Route: 048
     Dates: start: 20190212, end: 20190212
  65. CEFTIZOXIME SODIUM [Concomitant]
     Active Substance: CEFTIZOXIME SODIUM
     Route: 042
     Dates: start: 20190105, end: 20190118
  66. FLUCONAZOLE. [Concomitant]
     Active Substance: FLUCONAZOLE
     Route: 048
     Dates: start: 20190215, end: 20190222
  67. PANTOPRAZOLE SODIUM. [Concomitant]
     Active Substance: PANTOPRAZOLE SODIUM
     Route: 050
     Dates: start: 20190115, end: 20190116
  68. POTASSIUM CITRATE. [Concomitant]
     Active Substance: POTASSIUM CITRATE
     Route: 048
     Dates: start: 20190329, end: 20190330
  69. ATEZOLIZUMAB. [Suspect]
     Active Substance: ATEZOLIZUMAB
     Indication: NON-SMALL CELL LUNG CANCER
     Dosage: ON 30/JAN/2019 AT 12:30, MOST RECENT DOSE OF ATEZOLIZUMAB PRIOR TO PLEURAL EFFUSION AND HYPOTHYROIDI
     Route: 042
     Dates: start: 20181218
  70. POTASSIUM CHLORIDE. [Concomitant]
     Active Substance: POTASSIUM CHLORIDE
     Route: 042
     Dates: start: 20190607, end: 20190613
  71. AMBROXOL [Concomitant]
     Active Substance: AMBROXOL
     Route: 042
     Dates: start: 20190105, end: 20190116
  72. INDOMETHACIN [INDOMETACIN] [Concomitant]
     Active Substance: INDOMETHACIN
     Route: 054
     Dates: start: 20190107, end: 20190107
  73. INDOMETHACIN [INDOMETACIN] [Concomitant]
     Active Substance: INDOMETHACIN
     Route: 065
     Dates: start: 20190516, end: 20190516
  74. DEXAMETHASONE. [Concomitant]
     Active Substance: DEXAMETHASONE
     Route: 042
     Dates: start: 20190214, end: 20190215
  75. BERBERINE [Concomitant]
     Active Substance: BERBERINE
     Route: 048
     Dates: start: 20190220, end: 20190220
  76. CEFTIZOXIME SODIUM [Concomitant]
     Active Substance: CEFTIZOXIME SODIUM
     Route: 042
     Dates: start: 20190606, end: 20190616
  77. GRANISETRON [Concomitant]
     Active Substance: GRANISETRON
     Route: 042
     Dates: start: 20190213, end: 20190215
  78. FLUCONAZOLE. [Concomitant]
     Active Substance: FLUCONAZOLE
     Route: 048
     Dates: start: 20190215, end: 20190215
  79. COMPOUND PLATYCODON [Concomitant]
     Route: 048
     Dates: start: 20190518, end: 20190518
  80. COMBIVENT [Concomitant]
     Active Substance: ALBUTEROL SULFATE\IPRATROPIUM BROMIDE
     Route: 065
     Dates: start: 20190616, end: 20190623
  81. TRAMADOL HYDROCHLORIDE. [Concomitant]
     Active Substance: TRAMADOL HYDROCHLORIDE
     Route: 048
     Dates: start: 20190106, end: 20190613
  82. POTASSIUM CHLORIDE. [Concomitant]
     Active Substance: POTASSIUM CHLORIDE
     Route: 042
     Dates: start: 20190108, end: 20190116
  83. POTASSIUM CHLORIDE. [Concomitant]
     Active Substance: POTASSIUM CHLORIDE
     Route: 048
     Dates: start: 20190513, end: 20190522
  84. INDOMETHACIN [INDOMETACIN] [Concomitant]
     Active Substance: INDOMETHACIN
     Route: 054
     Dates: start: 20190205, end: 20190205
  85. INDOMETHACIN [INDOMETACIN] [Concomitant]
     Active Substance: INDOMETHACIN
     Route: 054
     Dates: start: 20190218, end: 20190222
  86. INDOMETHACIN [INDOMETACIN] [Concomitant]
     Active Substance: INDOMETHACIN
     Route: 054
     Dates: start: 20190215, end: 20190215
  87. INDOMETHACIN [INDOMETACIN] [Concomitant]
     Active Substance: INDOMETHACIN
     Route: 054
     Dates: start: 20190216, end: 20190218
  88. CODEINE PHOSPHATE [Concomitant]
     Active Substance: CODEINE PHOSPHATE
     Route: 048
     Dates: start: 20190606, end: 20190606
  89. MEDROXYPROGESTERONE [Concomitant]
     Active Substance: MEDROXYPROGESTERONE
     Indication: DECREASED APPETITE
     Route: 065
     Dates: start: 20190130, end: 20190130
  90. DEXAMETHASONE. [Concomitant]
     Active Substance: DEXAMETHASONE
     Route: 042
     Dates: start: 20190213, end: 20190214
  91. PLATYCODON GRANDIFLORUS [Concomitant]
     Route: 048
     Dates: start: 20190205, end: 20190205
  92. POTASSIUM CHLORIDE. [Concomitant]
     Active Substance: POTASSIUM CHLORIDE
     Route: 042
     Dates: start: 20190129, end: 20190130
  93. POTASSIUM CHLORIDE. [Concomitant]
     Active Substance: POTASSIUM CHLORIDE
     Route: 048
     Dates: start: 20190203, end: 20190215
  94. DEZOCINE [Concomitant]
     Active Substance: DEZOCINE
     Route: 042
     Dates: start: 20190105, end: 20190105
  95. INDOMETHACIN [INDOMETACIN] [Concomitant]
     Active Substance: INDOMETHACIN
     Route: 054
     Dates: start: 20190213, end: 20190213
  96. INDOMETHACIN [INDOMETACIN] [Concomitant]
     Active Substance: INDOMETHACIN
     Route: 054
     Dates: start: 20190108, end: 20190108
  97. INDOMETHACIN [INDOMETACIN] [Concomitant]
     Active Substance: INDOMETHACIN
     Route: 054
     Dates: start: 20190323, end: 20190323
  98. INDOMETHACIN [INDOMETACIN] [Concomitant]
     Active Substance: INDOMETHACIN
     Route: 048
     Dates: start: 20190329, end: 20190329
  99. CODEINE PHOSPHATE [Concomitant]
     Active Substance: CODEINE PHOSPHATE
     Route: 048
     Dates: start: 20190207, end: 20190207
  100. MEDROXYPROGESTERONE [Concomitant]
     Active Substance: MEDROXYPROGESTERONE
     Route: 048
     Dates: start: 20190130, end: 20190203
  101. DEXAMETHASONE. [Concomitant]
     Active Substance: DEXAMETHASONE
     Dosage: SOLUTION
     Route: 042
     Dates: start: 20190215, end: 20190215
  102. METOCLOPRAMIDE. [Concomitant]
     Active Substance: METOCLOPRAMIDE
     Indication: DECREASED APPETITE
     Route: 030
     Dates: start: 20190212, end: 20190212
  103. HUMAN SERUM ALBUMIN [Concomitant]
     Active Substance: ALBUMIN HUMAN
     Indication: DECREASED APPETITE
     Route: 042
     Dates: start: 20190201, end: 20190202
  104. MOXIFLOXACIN. [Concomitant]
     Active Substance: MOXIFLOXACIN
     Route: 042
     Dates: start: 20190203, end: 20190213
  105. ALBUMIN [Concomitant]
     Active Substance: ALBUMIN HUMAN
     Dosage: PREPARED FROM HUMAN PLASMA
     Route: 050
     Dates: start: 20190617, end: 20190619
  106. BIAPENEM [Concomitant]
     Active Substance: BIAPENEM
     Route: 065
     Dates: start: 20190516, end: 20190522
  107. METOPROLOL TARTRATE. [Concomitant]
     Active Substance: METOPROLOL TARTRATE
     Route: 048
     Dates: start: 20190606, end: 20190613
  108. ALBUMIN PREPARED FROM HUMAN PLASMA [Concomitant]
     Route: 042
     Dates: start: 20190515, end: 20190518
  109. FAT EMULSION NOS [Concomitant]
     Active Substance: EGG PHOSPHOLIPIDS\SAFFLOWER OIL\SOYBEAN OIL
     Route: 042
     Dates: start: 20190610, end: 20190623
  110. PULMICORT TURBUHALER [Concomitant]
     Active Substance: BUDESONIDE
     Route: 065
     Dates: start: 20190607, end: 20190613
  111. OSELTAMIVIR [Concomitant]
     Active Substance: OSELTAMIVIR
     Indication: PROPHYLAXIS
     Route: 048
     Dates: start: 20190209, end: 20190209
  112. TRAMADOL HYDROCHLORIDE. [Concomitant]
     Active Substance: TRAMADOL HYDROCHLORIDE
     Indication: PROPHYLAXIS
     Route: 048
  113. POTASSIUM CHLORIDE. [Concomitant]
     Active Substance: POTASSIUM CHLORIDE
     Route: 042
     Dates: start: 20190130, end: 20190225
  114. POTASSIUM CHLORIDE. [Concomitant]
     Active Substance: POTASSIUM CHLORIDE
     Route: 065
     Dates: start: 20190515, end: 20190515
  115. POTASSIUM CHLORIDE. [Concomitant]
     Active Substance: POTASSIUM CHLORIDE
     Route: 048
     Dates: start: 20190522
  116. INDOMETHACIN [INDOMETACIN] [Concomitant]
     Active Substance: INDOMETHACIN
     Indication: PYREXIA
     Route: 054
     Dates: start: 20190111, end: 20190111
  117. INDOMETHACIN [INDOMETACIN] [Concomitant]
     Active Substance: INDOMETHACIN
     Route: 054
     Dates: start: 20190129, end: 20190129
  118. INDOMETHACIN [INDOMETACIN] [Concomitant]
     Active Substance: INDOMETHACIN
     Route: 048
     Dates: start: 20190222, end: 20190222
  119. CODEINE PHOSPHATE [Concomitant]
     Active Substance: CODEINE PHOSPHATE
     Dosage: 1 TABLET
     Route: 048
     Dates: start: 20190129, end: 20190129
  120. CODEINE PHOSPHATE [Concomitant]
     Active Substance: CODEINE PHOSPHATE
     Route: 048
     Dates: start: 20190202, end: 20190202
  121. CODEINE PHOSPHATE [Concomitant]
     Active Substance: CODEINE PHOSPHATE
     Route: 048
     Dates: start: 20190609, end: 20190609
  122. CODEINE PHOSPHATE [Concomitant]
     Active Substance: CODEINE PHOSPHATE
     Route: 048
     Dates: start: 20190420, end: 20190421
  123. DEXAMETHASONE. [Concomitant]
     Active Substance: DEXAMETHASONE
     Dosage: SOLUTION
     Route: 042
     Dates: start: 20190216, end: 20190225
  124. IMIPENEM CILASTATINE MYLAN [Concomitant]
     Active Substance: IMIPENEM
     Indication: EMPYEMA
     Route: 042
     Dates: start: 20190131, end: 20190213
  125. CEFTIZOXIME SODIUM [Concomitant]
     Active Substance: CEFTIZOXIME SODIUM
     Route: 065
     Dates: start: 20181115, end: 20181118
  126. ESTAZOLAM. [Concomitant]
     Active Substance: ESTAZOLAM
     Indication: INSOMNIA
     Route: 048
     Dates: start: 20190215, end: 20190217
  127. THYMOSTIMULIN [Concomitant]
     Indication: PROPHYLAXIS
     Route: 065
     Dates: start: 20181115, end: 20181118
  128. BIAPENEM [Concomitant]
     Active Substance: BIAPENEM
     Route: 042
     Dates: start: 20190328, end: 20190330
  129. METOPROLOL TARTRATE. [Concomitant]
     Active Substance: METOPROLOL TARTRATE
     Route: 048
     Dates: start: 20190512, end: 20190522
  130. ALBUMIN PREPARED FROM HUMAN PLASMA [Concomitant]
     Route: 042
     Dates: start: 20190617, end: 20190619
  131. COMBIVENT [Concomitant]
     Active Substance: ALBUTEROL SULFATE\IPRATROPIUM BROMIDE
     Route: 065
     Dates: start: 20190607, end: 20190613
  132. PULMICORT TURBUHALER [Concomitant]
     Active Substance: BUDESONIDE
     Route: 065
     Dates: start: 20190606, end: 20190606
  133. LIDOCAINE HYDROCHLORIDE. [Concomitant]
     Active Substance: LIDOCAINE HYDROCHLORIDE
     Route: 042
     Dates: start: 20190514, end: 20190514
  134. DISODIUM CANTHARIDINATE [Concomitant]
     Route: 042
     Dates: start: 20190608, end: 20190616
  135. OSELTAMIVIR [Concomitant]
     Active Substance: OSELTAMIVIR
     Route: 048
     Dates: start: 20190209, end: 20190215

REACTIONS (3)
  - Hydrothorax [Recovered/Resolved]
  - Pleural effusion [Recovered/Resolved]
  - Pneumonia [Not Recovered/Not Resolved]

NARRATIVE: CASE EVENT DATE: 20190130
